FAERS Safety Report 11328827 (Version 1)
Quarter: 2015Q3

REPORT INFORMATION
  Report Type: Spontaneous
  Country: US (occurrence: US)
  Receive Date: 20150731
  Receipt Date: 20150731
  Transmission Date: 20151125
  Serious: No
  Sender: FDA-Public Use
  Company Number: US-ASTRAZENECA-2004UW12053

PATIENT
  Age: 21199 Day
  Sex: Male
  Weight: 138.3 kg

DRUGS (10)
  1. RELAFEN [Concomitant]
     Active Substance: NABUMETONE
  2. UNSPECIFIED ANTIBIOTIC [Concomitant]
     Active Substance: UNSPECIFIED INGREDIENT
  3. CRESTOR [Suspect]
     Active Substance: ROSUVASTATIN CALCIUM
     Indication: BLOOD CHOLESTEROL INCREASED
     Route: 048
     Dates: start: 200405
  4. MIRAPEX [Concomitant]
     Active Substance: PRAMIPEXOLE DIHYDROCHLORIDE
  5. BABY ASA [Concomitant]
     Active Substance: ASPIRIN
  6. CLONAPIN [Concomitant]
     Active Substance: CLONAZEPAM
  7. UNSPECIFIED GENERAL ANESTHESIA [Concomitant]
  8. BYDUREON [Suspect]
     Active Substance: EXENATIDE
     Indication: TYPE 2 DIABETES MELLITUS
     Route: 058
  9. AMITRIPTYLINE [Concomitant]
     Active Substance: AMITRIPTYLINE
  10. ISOSORBIDE. [Concomitant]
     Active Substance: ISOSORBIDE
     Indication: ARTERIAL DISORDER
     Route: 048

REACTIONS (6)
  - Pain in extremity [Unknown]
  - Hiccups [Unknown]
  - Myalgia [Unknown]
  - Product quality issue [Unknown]
  - Underdose [Recovered/Resolved]
  - Intentional product misuse [Unknown]

NARRATIVE: CASE EVENT DATE: 20040609
